FAERS Safety Report 8805730 (Version 1)
Quarter: 2012Q4

REPORT INFORMATION
  Report Type: 
  Country: TW (occurrence: TW)
  Receive Date: 20120924
  Receipt Date: 20120924
  Transmission Date: 20130627
  Serious: Yes (Hospitalization, Other)
  Sender: FDA-Public Use
  Company Number: TW-009507513-1209TWN005444

PATIENT
  Age: 69 Year
  Sex: Female

DRUGS (2)
  1. FOSAMAX [Suspect]
     Indication: OSTEOPOROSIS POSTMENOPAUSAL
     Dosage: 70 mg, qw
     Route: 048
     Dates: start: 2006
  2. CALCIUM (UNSPECIFIED) [Concomitant]
     Dosage: UNK, qw
     Route: 048

REACTIONS (2)
  - Femur fracture [Unknown]
  - Femur fracture [Unknown]
